FAERS Safety Report 14784655 (Version 3)
Quarter: 2019Q1

REPORT INFORMATION
  Report Type: Report from Study
  Country: PL (occurrence: PL)
  Receive Date: 20180420
  Receipt Date: 20190206
  Transmission Date: 20190417
  Serious: Yes (Hospitalization)
  Sender: FDA-Public Use
  Company Number: PL-ROCHE-2107970

PATIENT
  Age: 71 Year
  Sex: Male
  Weight: 95 kg

DRUGS (14)
  1. TORAMIDE [Concomitant]
     Route: 048
  2. PANPRAZOX [Concomitant]
     Route: 048
  3. PREDUCTAL MR [Concomitant]
     Active Substance: TRIMETAZIDINE DIHYDROCHLORIDE
     Route: 048
  4. RESELIGO [Concomitant]
     Active Substance: GOSERELIN ACETATE
     Route: 058
     Dates: start: 201706
  5. ENZALUTAMIDE [Suspect]
     Active Substance: ENZALUTAMIDE
     Indication: HORMONE-REFRACTORY PROSTATE CANCER
     Dosage: DATE OF MOST RECENT DOSE 160 MG PRIOR TO SAE ONSET: 11/APR/2018 AT 20:00
     Route: 048
     Dates: start: 20180322
  6. IBUPROFEN. [Concomitant]
     Active Substance: IBUPROFEN
     Route: 048
  7. NEBILET [Concomitant]
     Active Substance: NEBIVOLOL
     Route: 048
  8. ZOMIKOS [Concomitant]
     Route: 048
  9. TRITACE [Concomitant]
     Active Substance: RAMIPRIL
     Route: 048
  10. CARDURA XL [Concomitant]
     Active Substance: DOXAZOSIN MESYLATE
     Route: 048
  11. ATORVASTEROL [Concomitant]
     Active Substance: ATORVASTATIN
     Route: 048
  12. ATEZOLIZUMAB. [Suspect]
     Active Substance: ATEZOLIZUMAB
     Indication: HORMONE-REFRACTORY PROSTATE CANCER
     Dosage: DATE OF MOST RECENT DOSE 600 MG PRIOR TO SAE ONSET: 12/APR/2018 AT 12:10
     Route: 042
     Dates: start: 20180322
  13. AMLOMYL [Concomitant]
     Route: 048
  14. ACARD [Concomitant]
     Active Substance: ASPIRIN
     Route: 048

REACTIONS (1)
  - Anaphylactic reaction [Recovered/Resolved]

NARRATIVE: CASE EVENT DATE: 20180412
